FAERS Safety Report 4556523-8 (Version None)
Quarter: 2005Q1

REPORT INFORMATION
  Report Type: 
  Country: None (occurrence: None)
  Receive Date: 20050114
  Receipt Date: 20041116
  Transmission Date: 20050727
  Serious: Yes (Hospitalization)
  Sender: FDA-Public Use
  Company Number: EM2004-0591

PATIENT
  Age: 59 Year
  Sex: Male

DRUGS (6)
  1. PROLEUKIN [Suspect]
     Indication: RENAL CELL CARCINOMA STAGE UNSPECIFIED
     Dosage: SUBCUTAN.
     Route: 058
     Dates: start: 20040903, end: 20041014
  2. FLUOROURACIL [Suspect]
     Indication: RENAL CELL CARCINOMA STAGE UNSPECIFIED
     Dosage: IV
     Route: 042
     Dates: start: 20041001, end: 20041001
  3. INTERFERON (INTERFERON) [Concomitant]
  4. GLICLAZIDE (GLICLAZIDE) [Concomitant]
  5. PROTIUM (CYCLOBARBITAL CALCIUM) [Concomitant]
  6. DOMPERIDONE (DOMPERIDONE) [Concomitant]

REACTIONS (4)
  - MONOPLEGIA [None]
  - NEUTROPENIA [None]
  - SPINAL CORD COMPRESSION [None]
  - VISUAL DISTURBANCE [None]
